FAERS Safety Report 5741412-3 (Version None)
Quarter: 2008Q2

REPORT INFORMATION
  Report Type: 
  Country: None (occurrence: None)
  Receive Date: 20080514
  Receipt Date: 20080429
  Transmission Date: 20081010
  Serious: Yes (Hospitalization, Disabling)
  Sender: FDA-Public Use
  Company Number: 310008M08FRA

PATIENT
  Age: 38 Year
  Sex: Female

DRUGS (12)
  1. GONAL-F [Suspect]
     Indication: ARTIFICIAL INSEMINATION BY PARTNER
     Dosage: DOSAGE FORMS
     Dates: start: 20071101
  2. CLOMID [Suspect]
     Indication: ARTIFICIAL INSEMINATION BY PARTNER
     Dosage: 1 DOSAGE FORMS, CYCLE, ORAL, 1 DOSAGE FORMS, ORAL
     Route: 048
     Dates: start: 20070901
  3. CLOMID [Suspect]
     Indication: ARTIFICIAL INSEMINATION BY PARTNER
     Dosage: 1 DOSAGE FORMS, CYCLE, ORAL, 1 DOSAGE FORMS, ORAL
     Route: 048
     Dates: start: 20071101
  4. PUREGON (FOLLITROPIN BETA) [Suspect]
     Indication: ARTIFICIAL INSEMINATION BY PARTNER
     Dosage: 1 DOSAGE FORMS, SUBCUTANEOUS
     Route: 058
     Dates: start: 20070901
  5. GONADOTROPHINE CHORIONIC ENDO (CHORIONIC GONADOTROPHIN) [Suspect]
     Indication: ARTIFICIAL INSEMINATION BY PARTNER
     Dosage: INTRAMUSCULAR
     Route: 030
     Dates: start: 20070901
  6. GONADOTROPHINE CHORIONIC ENDO (CHORIONIC GONADOTROPHIN) [Suspect]
     Indication: ARTIFICIAL INSEMINATION BY PARTNER
     Dosage: INTRAMUSCULAR
     Route: 030
     Dates: start: 20071101
  7. DYDROGESTERONE TAB [Concomitant]
  8. TRETINOIN [Concomitant]
  9. MEFENAMIC ACID [Concomitant]
  10. DICLOFENAC SODIUM [Concomitant]
  11. DI-GESIC [Concomitant]
  12. TETRAZEPAM [Concomitant]

REACTIONS (11)
  - ALANINE AMINOTRANSFERASE INCREASED [None]
  - ANTINUCLEAR ANTIBODY POSITIVE [None]
  - ARTHRALGIA [None]
  - ASPARTATE AMINOTRANSFERASE INCREASED [None]
  - EPSTEIN-BARR VIRUS ANTIBODY POSITIVE [None]
  - GROIN PAIN [None]
  - LIVER DISORDER [None]
  - MYALGIA [None]
  - NECK PAIN [None]
  - PARALYSIS [None]
  - TOXOPLASMOSIS [None]
